FAERS Safety Report 4396956-6 (Version None)
Quarter: 2004Q2

REPORT INFORMATION
  Report Type: 
  Country: None (occurrence: None)
  Receive Date: 20040621
  Receipt Date: 20040304
  Transmission Date: 20050107
  Serious: Yes (Other)
  Sender: FDA-Public Use
  Company Number: USA-2004-0013604

PATIENT
  Sex: Female

DRUGS (5)
  1. OXYCODONE HCL [Suspect]
  2. HYDROCODONE BITARTRATE [Suspect]
  3. XANAX [Suspect]
  4. DALMANE [Suspect]
  5. DIAZEPAM [Suspect]

REACTIONS (1)
  - DRUG ABUSER [None]
